FAERS Safety Report 5527313-4 (Version None)
Quarter: 2007Q4

REPORT INFORMATION
  Report Type: 
  Country: None (occurrence: None)
  Receive Date: 20071128
  Receipt Date: 20071120
  Transmission Date: 20080405
  Serious: Yes (Hospitalization)
  Sender: FDA-Public Use
  Company Number: B0493731A

PATIENT
  Age: 54 Year
  Sex: Female

DRUGS (7)
  1. VALTREX [Suspect]
     Indication: FACIAL PALSY
     Dosage: 1G THREE TIMES PER DAY
     Route: 048
     Dates: start: 20071022, end: 20071025
  2. PROTECADIN [Suspect]
     Dosage: 10MG TWICE PER DAY
     Route: 048
     Dates: start: 20071021, end: 20071025
  3. ATP [Concomitant]
     Route: 048
     Dates: start: 20071022, end: 20071025
  4. CYANOCOBALAMIN [Concomitant]
     Route: 048
     Dates: start: 20071022, end: 20071025
  5. PREDONINE [Concomitant]
     Indication: FACIAL PALSY
     Dosage: 60MG PER DAY
     Route: 042
     Dates: start: 20071022, end: 20071022
  6. PREDONINE [Concomitant]
     Dosage: 60MG PER DAY
     Route: 048
     Dates: start: 20071023, end: 20071025
  7. DEXTRAN [Concomitant]
     Indication: FACIAL PALSY
     Dosage: 250ML PER DAY
     Route: 042
     Dates: start: 20071021, end: 20071025

REACTIONS (11)
  - ALANINE AMINOTRANSFERASE INCREASED [None]
  - ASPARTATE AMINOTRANSFERASE INCREASED [None]
  - BACK PAIN [None]
  - BACTERAEMIA [None]
  - BLOOD ALKALINE PHOSPHATASE INCREASED [None]
  - CHILLS [None]
  - HEADACHE [None]
  - HEPATIC FUNCTION ABNORMAL [None]
  - NAUSEA [None]
  - PANCYTOPENIA [None]
  - PYREXIA [None]
